FAERS Safety Report 14496633 (Version 5)
Quarter: 2018Q2

REPORT INFORMATION
  Report Type: Report from Study
  Country: US (occurrence: US)
  Receive Date: 20180207
  Receipt Date: 20180426
  Transmission Date: 20180711
  Serious: Yes (Hospitalization, Other)
  Sender: FDA-Public Use
  Company Number: US-GILEAD-2018-0317483

PATIENT
  Age: 66 Year
  Sex: Male
  Weight: 76.9 kg

DRUGS (9)
  1. AMBRISENTAN [Suspect]
     Active Substance: AMBRISENTAN
     Dosage: 10 MG, UNK
     Route: 048
     Dates: end: 20180318
  2. AMIODARONE [Concomitant]
     Active Substance: AMIODARONE
  3. TAMSULOSIN [Concomitant]
     Active Substance: TAMSULOSIN
  4. ELIQUIS [Concomitant]
     Active Substance: APIXABAN
  5. CARVEDILOL. [Concomitant]
     Active Substance: CARVEDILOL
     Dosage: 3.125 MG, UNK
     Route: 048
  6. OXYGEN. [Concomitant]
     Active Substance: OXYGEN
  7. AMBRISENTAN [Suspect]
     Active Substance: AMBRISENTAN
     Indication: PULMONARY ARTERIAL HYPERTENSION
     Dosage: 5 MG, QD
     Route: 048
     Dates: start: 20180108
  8. ADEMPAS [Concomitant]
     Active Substance: RIOCIGUAT
     Indication: PULMONARY HYPERTENSION
     Dosage: 0.5 MG, UNK
     Route: 048
     Dates: start: 20170802
  9. DIGOXIN. [Concomitant]
     Active Substance: DIGOXIN
     Indication: PULMONARY HYPERTENSION
     Dosage: 0.125 MG, UNK
     Route: 048

REACTIONS (42)
  - Haemorrhage [Not Recovered/Not Resolved]
  - Fall [Unknown]
  - Rib fracture [Unknown]
  - Abdominal discomfort [Not Recovered/Not Resolved]
  - Pericardial effusion [Unknown]
  - Prostatic disorder [Not Recovered/Not Resolved]
  - General physical health deterioration [Unknown]
  - Peripheral swelling [Recovering/Resolving]
  - Hernia pain [Recovered/Resolved]
  - Large intestine perforation [Unknown]
  - Cardiac failure congestive [Unknown]
  - Feeding disorder [Unknown]
  - Unevaluable event [Unknown]
  - Laceration [Unknown]
  - Testicular disorder [Unknown]
  - Nasal congestion [Unknown]
  - Sinusitis [Unknown]
  - Oedema peripheral [Recovered/Resolved]
  - Thrombosis [Unknown]
  - Insomnia [Not Recovered/Not Resolved]
  - Feeling abnormal [Unknown]
  - Nasal septum deviation [Unknown]
  - Weight increased [Unknown]
  - Peripheral swelling [Unknown]
  - Swelling [Unknown]
  - Pneumonia [Recovered/Resolved]
  - Influenza [Not Recovered/Not Resolved]
  - Dysstasia [Not Recovered/Not Resolved]
  - Limb injury [Unknown]
  - Headache [Unknown]
  - Terminal state [Unknown]
  - Weight decreased [Unknown]
  - Swelling [Not Recovered/Not Resolved]
  - Joint swelling [Not Recovered/Not Resolved]
  - Dehydration [Not Recovered/Not Resolved]
  - Haematochezia [Unknown]
  - Dyspnoea [Recovered/Resolved]
  - Lacrimation increased [Unknown]
  - Diarrhoea [Not Recovered/Not Resolved]
  - Joint injury [Unknown]
  - Mental impairment [Unknown]
  - Urinary tract infection [Recovered/Resolved]

NARRATIVE: CASE EVENT DATE: 20180313
